FAERS Safety Report 25465132 (Version 1)
Quarter: 2025Q2

REPORT INFORMATION
  Report Type: Report from Study
  Country: CA (occurrence: CA)
  Receive Date: 20250622
  Receipt Date: 20250622
  Transmission Date: 20250717
  Serious: Yes (Death, Hospitalization)
  Sender: ABBVIE
  Company Number: CA-ABBVIE-6337006

PATIENT
  Age: 88 Year
  Sex: Male

DRUGS (1)
  1. LUPRON [Suspect]
     Active Substance: LEUPROLIDE ACETATE
     Indication: Prostate cancer
     Dosage: FORM STRENGTH 22.5 MG
     Route: 065
     Dates: start: 20210326, end: 20250317

REACTIONS (2)
  - Death [Fatal]
  - Gait inability [Unknown]

NARRATIVE: CASE EVENT DATE: 20250101
